FAERS Safety Report 14838383 (Version 1)
Quarter: 2018Q2

REPORT INFORMATION
  Report Type: Spontaneous
  Country: GB (occurrence: GB)
  Receive Date: 20180502
  Receipt Date: 20180502
  Transmission Date: 20180711
  Serious: Yes (Death)
  Sender: FDA-Public Use
  Company Number: PHHY2017GB202859

PATIENT
  Age: 63 Year
  Sex: Female

DRUGS (4)
  1. METHOTREXATE. [Suspect]
     Active Substance: METHOTREXATE
     Indication: MYCOSIS FUNGOIDES STAGE IV
     Route: 065
  2. BEXAROTENE. [Concomitant]
     Active Substance: BEXAROTENE
     Indication: MYCOSIS FUNGOIDES
     Route: 065
  3. CHLORAMBUCIL [Concomitant]
     Active Substance: CHLORAMBUCIL
     Indication: MYCOSIS FUNGOIDES
     Route: 065
  4. PREDNISOLONE. [Concomitant]
     Active Substance: PREDNISOLONE
     Indication: MYCOSIS FUNGOIDES
     Route: 065

REACTIONS (1)
  - Diffuse large B-cell lymphoma [Fatal]
